FAERS Safety Report 13863520 (Version 10)
Quarter: 2020Q1

REPORT INFORMATION
  Report Type: Spontaneous
  Country: US (occurrence: US)
  Receive Date: 20170814
  Receipt Date: 20200129
  Transmission Date: 20200409
  Serious: Yes (Other)
  Sender: FDA-Public Use
  Company Number: US-PFIZER INC-2017347126

PATIENT
  Age: 73 Year
  Sex: Female
  Weight: 61 kg

DRUGS (3)
  1. XELJANZ XR [Suspect]
     Active Substance: TOFACITINIB CITRATE
     Dosage: 11 MG, UNK
     Route: 048
     Dates: start: 2017, end: 20171004
  2. XELJANZ XR [Suspect]
     Active Substance: TOFACITINIB CITRATE
     Dosage: 11 MG, 1X/DAY (EVERY MORNING)
     Route: 048
  3. XELJANZ XR [Suspect]
     Active Substance: TOFACITINIB CITRATE
     Indication: RHEUMATOID ARTHRITIS
     Dosage: 11 MG, 1X/DAY
     Route: 048
     Dates: start: 2015, end: 201702

REACTIONS (11)
  - Respiratory disorder [Unknown]
  - Nasopharyngitis [Not Recovered/Not Resolved]
  - Rhinorrhoea [Not Recovered/Not Resolved]
  - Gastrointestinal disorder [Unknown]
  - Tuberculosis [Recovered/Resolved]
  - Cough [Not Recovered/Not Resolved]
  - Mycobacterium avium complex infection [Unknown]
  - Malaise [Unknown]
  - Chills [Not Recovered/Not Resolved]
  - Aphonia [Unknown]
  - Pneumonia [Unknown]

NARRATIVE: CASE EVENT DATE: 201711
